FAERS Safety Report 17403062 (Version 1)
Quarter: 2020Q1

REPORT INFORMATION
  Report Type: Spontaneous
  Country: US (occurrence: US)
  Receive Date: 20200211
  Receipt Date: 20200211
  Transmission Date: 20200409
  Serious: No
  Sender: FDA-Public Use
  Company Number: US-PERRIGO-19US005655

PATIENT
  Sex: Female
  Weight: 60.32 kg

DRUGS (1)
  1. TRETINOIN. [Suspect]
     Active Substance: TRETINOIN
     Indication: ACNE
     Dosage: A DAB 1-2 TIMES WEEKLY
     Route: 061
     Dates: start: 2017, end: 201905

REACTIONS (5)
  - Inappropriate schedule of product administration [Recovered/Resolved]
  - Eye pruritus [Recovered/Resolved]
  - Hypersensitivity [Recovered/Resolved]
  - Ocular hyperaemia [Recovered/Resolved]
  - Eye swelling [Recovered/Resolved]

NARRATIVE: CASE EVENT DATE: 2017
